FAERS Safety Report 23334134 (Version 8)
Quarter: 2025Q2

REPORT INFORMATION
  Report Type: Report from Study
  Country: JP (occurrence: JP)
  Receive Date: 20231223
  Receipt Date: 20250416
  Transmission Date: 20250716
  Serious: Yes (Other)
  Sender: UCB
  Company Number: JP-UCBSA-2023001109

PATIENT
  Age: 13 Year
  Sex: Male
  Weight: 52.1 kg

DRUGS (26)
  1. FENFLURAMINE HYDROCHLORIDE [Suspect]
     Active Substance: FENFLURAMINE HYDROCHLORIDE
     Indication: Severe myoclonic epilepsy of infancy
     Dosage: 0.1 MILLIGRAM/KILOGRAM, 2X/DAY (BID)
     Route: 048
     Dates: start: 20221227
  2. FENFLURAMINE HYDROCHLORIDE [Suspect]
     Active Substance: FENFLURAMINE HYDROCHLORIDE
     Dosage: 0.2 MILLIGRAM/KILOGRAM, 2X/DAY (BID)
     Route: 048
     Dates: start: 20230105
  3. VALPROATE SODIUM [Concomitant]
     Active Substance: VALPROATE SODIUM
     Indication: Severe myoclonic epilepsy of infancy
     Dosage: 650 MILLIGRAM, ONCE DAILY (QD)
     Route: 048
     Dates: start: 20230105
  4. VALPROATE SODIUM [Concomitant]
     Active Substance: VALPROATE SODIUM
     Dosage: 600 MILLIGRAM, ONCE DAILY (QD)
     Route: 048
     Dates: start: 20230105, end: 20230117
  5. VALPROATE SODIUM [Concomitant]
     Active Substance: VALPROATE SODIUM
     Dosage: 550 MILLIGRAM, ONCE DAILY (QD)
     Route: 048
     Dates: start: 20230117, end: 20230627
  6. VALPROATE SODIUM [Concomitant]
     Active Substance: VALPROATE SODIUM
     Dosage: 500 MILLIGRAM, ONCE DAILY (QD)
     Route: 048
     Dates: start: 20230627, end: 20230822
  7. VALPROATE SODIUM [Concomitant]
     Active Substance: VALPROATE SODIUM
     Dosage: 470 MILLIGRAM, ONCE DAILY (QD)
     Route: 048
     Dates: start: 20230822
  8. VALPROATE SODIUM [Concomitant]
     Active Substance: VALPROATE SODIUM
     Dosage: 500 MILLIGRAM, ONCE DAILY (QD)
     Route: 048
     Dates: start: 20240312, end: 20240701
  9. VALPROATE SODIUM [Concomitant]
     Active Substance: VALPROATE SODIUM
     Dosage: 450 MILLIGRAM, ONCE DAILY (QD)
     Route: 048
     Dates: start: 20240702
  10. MYSTAN [Concomitant]
     Active Substance: CLOBAZAM
     Indication: Severe myoclonic epilepsy of infancy
     Dosage: 11.5 MILLIGRAM, ONCE DAILY (QD)
     Route: 048
     Dates: start: 20231031, end: 20231114
  11. MYSTAN [Concomitant]
     Active Substance: CLOBAZAM
     Dosage: 12 MILLIGRAM, ONCE DAILY (QD)
     Route: 048
     Dates: start: 20231114, end: 20231212
  12. MYSTAN [Concomitant]
     Active Substance: CLOBAZAM
     Dosage: 12.5 MILLIGRAM, ONCE DAILY (QD)
     Route: 048
     Dates: start: 20231212
  13. MYSTAN [Concomitant]
     Active Substance: CLOBAZAM
     Dosage: 13 MILLIGRAM, ONCE DAILY (QD)
     Route: 048
     Dates: start: 20240123, end: 20241112
  14. MYSTAN [Concomitant]
     Active Substance: CLOBAZAM
     Dosage: 12 MILLIGRAM, ONCE DAILY (QD)
     Route: 048
     Dates: start: 20241113, end: 20241217
  15. MYSTAN [Concomitant]
     Active Substance: CLOBAZAM
     Dosage: 11 MILLIGRAM, ONCE DAILY (QD)
     Route: 048
     Dates: start: 20241218
  16. PHENOBARBITAL [Concomitant]
     Active Substance: PHENOBARBITAL
     Indication: Severe myoclonic epilepsy of infancy
     Dosage: 170 MILLIGRAM, ONCE DAILY (QD)
     Route: 048
     Dates: start: 20230612
  17. PHENOBARBITAL [Concomitant]
     Active Substance: PHENOBARBITAL
     Dosage: 180 MILLIGRAM, ONCE DAILY (QD)
     Route: 048
     Dates: start: 20230613
  18. FYCOMPA [Concomitant]
     Active Substance: PERAMPANEL
     Indication: Severe myoclonic epilepsy of infancy
     Dosage: 9.5 MILLIGRAM, ONCE DAILY (QD)
     Route: 048
     Dates: start: 20230523
  19. FYCOMPA [Concomitant]
     Active Substance: PERAMPANEL
     Dosage: 9.5 MILLIGRAM, ONCE DAILY (QD)
     Route: 048
     Dates: start: 20230523
  20. LEVOCARNITINE [Concomitant]
     Active Substance: LEVOCARNITINE
     Indication: Product used for unknown indication
     Dosage: 15 MILLILITER, ONCE DAILY (QD)
     Route: 048
  21. VITAMIN B6 [Concomitant]
     Active Substance: PYRIDOXINE HYDROCHLORIDE
     Indication: Severe myoclonic epilepsy of infancy
     Dosage: 300 MILLIGRAM, ONCE DAILY (QD)
     Route: 048
  22. MOVICOL [Concomitant]
     Active Substance: POLYETHYLENE GLYCOL 3350\POTASSIUM CHLORIDE\SODIUM BICARBONATE\SODIUM CHLORIDE
     Indication: Constipation
     Dosage: 1 DOSAGE FORM, ONCE DAILY (QD)
     Route: 048
  23. MELATOBEL [Concomitant]
     Indication: Product used for unknown indication
     Dosage: 1 MILLIGRAM, ONCE DAILY (QD)
     Route: 048
     Dates: start: 20230214, end: 20230626
  24. MELATOBEL [Concomitant]
     Dosage: 1.5 MILLIGRAM, ONCE DAILY (QD)
     Route: 048
     Dates: start: 20230627, end: 20240408
  25. MELATOBEL [Concomitant]
     Dosage: 2 MILLIGRAM, ONCE DAILY (QD)
     Route: 048
     Dates: start: 20240408, end: 20240520
  26. MELATOBEL [Concomitant]
     Dosage: 3 MILLIGRAM, ONCE DAILY (QD)
     Route: 048
     Dates: start: 20240521

REACTIONS (3)
  - Atonic seizures [Recovering/Resolving]
  - Somnolence [Recovered/Resolved]
  - Decreased appetite [Recovering/Resolving]

NARRATIVE: CASE EVENT DATE: 20230105
